FAERS Safety Report 23245691 (Version 1)
Quarter: 2023Q4

REPORT INFORMATION
  Report Type: Spontaneous
  Country: US (occurrence: US)
  Receive Date: 20231130
  Receipt Date: 20231130
  Transmission Date: 20240109
  Serious: No
  Sender: FDA-Public Use
  Company Number: US-Fresenius Medical Care Renal Therapies Group-FMC-2311-001248

PATIENT
  Age: 76 Year
  Sex: Female
  Weight: 70.4 kg

DRUGS (1)
  1. DELFLEX WITH DEXTROSE 1.5% LOW MAGNESIUM LOW CALCIUM [Suspect]
     Active Substance: CALCIUM CHLORIDE\DEXTROSE\MAGNESIUM CHLORIDE\SODIUM CHLORIDE\SODIUM LACTATE
     Dosage: 2000 ML FOR 4 CYCLES WITH ONE DAYTIME EXCHANGE OF 2000 ML AND NO LAST FILL
     Route: 033

REACTIONS (1)
  - Renal mass [Recovered/Resolved]
